FAERS Safety Report 8918860 (Version 1)
Quarter: 2012Q4

REPORT INFORMATION
  Report Type: Spontaneous
  Country: US (occurrence: None)
  Receive Date: 20121115
  Receipt Date: 20121115
  Transmission Date: 20130627
  Serious: Yes (Hospitalization)
  Sender: FDA-Public Use
  Company Number: None

PATIENT
  Age: 50 Year
  Sex: Female
  Weight: 132.6 kg

DRUGS (1)
  1. DOXEPIN [Suspect]
     Indication: DEPRESSION
     Dosage: 75  MG  AT BEDTIME  PO
     Route: 048
     Dates: start: 20041014, end: 20121007

REACTIONS (5)
  - Urinary retention [None]
  - Pyrexia [None]
  - Chills [None]
  - Suprapubic pain [None]
  - Dysuria [None]
